FAERS Safety Report 20155476 (Version 3)
Quarter: 2022Q1

REPORT INFORMATION
  Report Type: Spontaneous
  Country: US (occurrence: None)
  Receive Date: 20211207
  Receipt Date: 20220111
  Transmission Date: 20220423
  Serious: No
  Sender: FDA-Public Use
  Company Number: 2021A802723

PATIENT
  Age: 25425 Day
  Sex: Male
  Weight: 93 kg

DRUGS (2)
  1. BYDUREON BCISE [Suspect]
     Active Substance: EXENATIDE
     Indication: Diabetes mellitus
     Route: 058
     Dates: start: 20211108
  2. BYDUREON [Concomitant]
     Active Substance: EXENATIDE
     Indication: Diabetes mellitus
     Route: 058
     Dates: start: 2018, end: 2021

REACTIONS (3)
  - Injection site haemorrhage [Unknown]
  - Product dose omission issue [Unknown]
  - Device leakage [Unknown]

NARRATIVE: CASE EVENT DATE: 20211108
